FAERS Safety Report 11317724 (Version 3)
Quarter: 2015Q4

REPORT INFORMATION
  Report Type: Spontaneous
  Country: US (occurrence: US)
  Receive Date: 20150728
  Receipt Date: 20151210
  Transmission Date: 20160304
  Serious: Yes (Death, Hospitalization, Other)
  Sender: FDA-Public Use
  Company Number: US-MERCK-1507USA012029

PATIENT
  Sex: Female
  Weight: 73.47 kg

DRUGS (2)
  1. JANUVIA [Suspect]
     Active Substance: SITAGLIPTIN PHOSPHATE
     Indication: TYPE 2 DIABETES MELLITUS
     Dosage: 100 MG, QD
     Route: 048
     Dates: start: 20070625, end: 201306
  2. VICTOZA [Suspect]
     Active Substance: LIRAGLUTIDE
     Indication: TYPE 2 DIABETES MELLITUS
     Dosage: 0.6MG - 1.8MG, QD
     Route: 048
     Dates: start: 201301, end: 201303

REACTIONS (22)
  - Pancreatic carcinoma metastatic [Unknown]
  - Hypertension [Unknown]
  - Appendicectomy [Unknown]
  - Anxiety disorder [Unknown]
  - Lymphadenopathy [Unknown]
  - Back pain [Not Recovered/Not Resolved]
  - Disorientation [Unknown]
  - Gastrooesophageal reflux disease [Unknown]
  - Metastases to liver [Unknown]
  - Urinary tract infection [Unknown]
  - Arthritis [Unknown]
  - Diverticulum [Unknown]
  - Confusional state [Unknown]
  - Depression [Unknown]
  - Pain in extremity [Unknown]
  - Gastrointestinal wall thickening [Unknown]
  - Blood urea decreased [Unknown]
  - First trimester pregnancy [Unknown]
  - Death [Fatal]
  - Mesenteric vein thrombosis [Unknown]
  - Hysterectomy [Unknown]
  - Atelectasis [Unknown]

NARRATIVE: CASE EVENT DATE: 20070808
